FAERS Safety Report 4456807-8 (Version None)
Quarter: 2004Q3

REPORT INFORMATION
  Report Type: 
  Country: None (occurrence: None)
  Receive Date: 20040921
  Receipt Date: 20040908
  Transmission Date: 20050211
  Serious: Yes (Death)
  Sender: FDA-Public Use
  Company Number: A02200402707

PATIENT
  Age: 58 Year
  Sex: Male

DRUGS (1)
  1. STILNOX            (ZOLPIDEM) [Suspect]
     Route: 048
     Dates: end: 20040226

REACTIONS (1)
  - DRUG LEVEL ABOVE THERAPEUTIC [None]
